FAERS Safety Report 17553547 (Version 2)
Quarter: 2020Q2

REPORT INFORMATION
  Report Type: Report from Study
  Country: US (occurrence: US)
  Receive Date: 20200317
  Receipt Date: 20200428
  Transmission Date: 20200713
  Serious: Yes (Hospitalization)
  Sender: FDA-Public Use
  Company Number: US-GILEAD-2020-0453739

PATIENT
  Age: 67 Year
  Sex: Female
  Weight: 60.2 kg

DRUGS (62)
  1. MAGNESIUM OXIDE. [Concomitant]
     Active Substance: MAGNESIUM OXIDE
     Dosage: 400,MG,DAILY
     Route: 048
     Dates: start: 20200215
  2. LORATADINE. [Concomitant]
     Active Substance: LORATADINE
     Dosage: 10,MG,AS NECESSARY
     Route: 048
     Dates: start: 20200215
  3. SODIUM CHLORIDE 0.9% [Concomitant]
     Active Substance: SODIUM CHLORIDE
     Dosage: 10,OTHER,DAILY
     Route: 041
     Dates: start: 20200225, end: 20200225
  4. ACETAMINOPHEN. [Concomitant]
     Active Substance: ACETAMINOPHEN
     Dosage: 650,MG,AS NECESSARY
     Route: 048
     Dates: start: 20200304
  5. CHLORHEXIDINE [Concomitant]
     Active Substance: CHLORHEXIDINE
     Dosage: UNK
     Route: 061
     Dates: start: 20200318, end: 20200320
  6. SENNOSIDES. [Concomitant]
     Active Substance: SENNOSIDES
     Dosage: 17.2,MG,TWICE DAILY
     Route: 048
     Dates: start: 20190315, end: 20200224
  7. RANITIDINE. [Concomitant]
     Active Substance: RANITIDINE
     Dosage: 300,MG,DAILY
     Route: 048
     Dates: start: 20190429
  8. RANITIDINE. [Concomitant]
     Active Substance: RANITIDINE
     Dosage: 300,MG,DAILY
     Route: 048
     Dates: start: 20190429, end: 20200224
  9. LEVOFLOXACIN. [Concomitant]
     Active Substance: LEVOFLOXACIN
     Dosage: 500,MG,DAILY
     Route: 048
     Dates: start: 20200224
  10. ACETAMINOPHEN. [Concomitant]
     Active Substance: ACETAMINOPHEN
     Dosage: 650,MG,DAILY
     Route: 048
     Dates: start: 20200225, end: 20200225
  11. DIPHENHYDRAMINE. [Concomitant]
     Active Substance: DIPHENHYDRAMINE
     Dosage: 12.5,MG,DAILY
     Route: 048
     Dates: start: 20200225, end: 20200225
  12. CHLORHEXIDINE 4% [Concomitant]
     Active Substance: CHLORHEXIDINE
     Dosage: 1,OTHER,AS NECESSARY
     Route: 061
     Dates: start: 20200225, end: 20200319
  13. CYCLOPHOSPHAMIDE. [Suspect]
     Active Substance: CYCLOPHOSPHAMIDE
     Indication: BONE MARROW CONDITIONING REGIMEN
     Dosage: 500
     Route: 042
     Dates: start: 20200220, end: 20200220
  14. FLUDARABINE [Suspect]
     Active Substance: FLUDARABINE PHOSPHATE
     Dosage: 30
     Route: 042
     Dates: start: 20200221, end: 20200221
  15. FOLIC ACID. [Concomitant]
     Active Substance: FOLIC ACID
     Dosage: 1,MG,DAILY
     Route: 048
     Dates: start: 20151109
  16. DAPSONE. [Concomitant]
     Active Substance: DAPSONE
     Dosage: 100,MG,DAILY
     Route: 048
     Dates: start: 20200131
  17. SODIUM CHLORIDE 0.9% [Concomitant]
     Active Substance: SODIUM CHLORIDE
     Dosage: UNK
     Dates: start: 20200304, end: 20200304
  18. SODIUM CHLORIDE 0.9% [Concomitant]
     Active Substance: SODIUM CHLORIDE
     Dosage: 500,ML,AS NECESSARYUNK
     Dates: start: 20200312, end: 20200315
  19. FUROSEMIDE. [Concomitant]
     Active Substance: FUROSEMIDE
     Dosage: 20,MG,DAILY
     Route: 041
     Dates: start: 20200221, end: 20200221
  20. LEVOFLOXACIN. [Concomitant]
     Active Substance: LEVOFLOXACIN
     Dosage: 500,MG,DAILY
     Route: 048
     Dates: start: 20200224, end: 20200303
  21. CYCLOPHOSPHAMIDE. [Suspect]
     Active Substance: CYCLOPHOSPHAMIDE
     Dosage: 500
     Route: 042
     Dates: start: 20200221, end: 20200221
  22. CHOLECALCIFEROL [Concomitant]
     Active Substance: CHOLECALCIFEROL
     Dosage: 2000,IU,DAILY
     Route: 048
     Dates: start: 20120605
  23. LIFITEGRAST [Concomitant]
     Active Substance: LIFITEGRAST
     Dosage: 1,OTHER,TWICE DAILY
     Route: 031
     Dates: start: 20190330
  24. ESOMEPRAZOLE. [Concomitant]
     Active Substance: ESOMEPRAZOLE MAGNESIUM
     Dosage: 40,MG,TWICE DAILY
     Route: 048
     Dates: start: 20190521
  25. GADOBUTROL. [Concomitant]
     Active Substance: GADOBUTROL
     Dosage: 6,OTHER,DAILY
     Route: 041
     Dates: start: 20200219, end: 20200219
  26. ACETAMINOPHEN. [Concomitant]
     Active Substance: ACETAMINOPHEN
     Dosage: 650,MG,AS NECESSARY
     Route: 048
     Dates: start: 20200304, end: 20200323
  27. PROCHLORPERAZINE. [Concomitant]
     Active Substance: PROCHLORPERAZINE
     Dosage: 5,MG,DAILY
     Route: 048
     Dates: start: 20200302, end: 20200302
  28. AXICABTAGENE CILOLEUCEL [Suspect]
     Active Substance: AXICABTAGENE CILOLEUCEL
     Indication: DIFFUSE LARGE B-CELL LYMPHOMA
     Dosage: UNK
     Route: 042
     Dates: start: 20200225, end: 20200225
  29. CYCLOPHOSPHAMIDE. [Suspect]
     Active Substance: CYCLOPHOSPHAMIDE
     Dosage: 500
     Route: 042
     Dates: start: 20200222, end: 20200222
  30. MULTIVITAMINS [VITAMINS NOS] [Concomitant]
     Active Substance: VITAMINS
     Dosage: 1,OTHER,DAILY
     Route: 048
     Dates: start: 20120605
  31. ONDANSETRON [Concomitant]
     Active Substance: ONDANSETRON
     Dosage: 8,MG,AS NECESSARY
     Route: 048
     Dates: start: 20190315
  32. LORAZEPAM. [Concomitant]
     Active Substance: LORAZEPAM
     Dosage: 0.5-1,MG,AS NECESSARY
     Route: 048
     Dates: start: 20190315
  33. SODIUM CHLORIDE 0.9% [Concomitant]
     Active Substance: SODIUM CHLORIDE
     Dosage: 500,OTHER,TWICE DAILY
     Route: 041
     Dates: start: 20200220, end: 20200222
  34. PEGFILGRASTIM [Concomitant]
     Active Substance: PEGFILGRASTIM
     Dosage: 6,MG,DAILY
     Route: 058
     Dates: start: 20200222, end: 20200222
  35. CHLORHEXIDINE [Concomitant]
     Active Substance: CHLORHEXIDINE
     Dosage: 1,OTHER,AS NECESSARY
     Route: 061
     Dates: start: 20200225
  36. PLATELETS [Concomitant]
     Active Substance: HUMAN PLATELET, ALLOGENIC
     Dosage: 250,ML,DAILY
     Route: 041
     Dates: start: 20200302, end: 20200302
  37. FLUDARABINE [Suspect]
     Active Substance: FLUDARABINE PHOSPHATE
     Dosage: 30
     Route: 042
     Dates: start: 20200222, end: 20200222
  38. CARBOXYMETHYL/GLY/POLY80/PF [Concomitant]
     Dosage: 1,OTHER,DAILY
     Route: 031
     Dates: start: 20171027
  39. SENNOSIDES. [Concomitant]
     Active Substance: SENNOSIDES
     Dosage: 17.2,MG,TWICE DAILY
     Route: 048
     Dates: start: 20190315
  40. CALCIUM CARBONATE. [Concomitant]
     Active Substance: CALCIUM CARBONATE
     Dosage: 500,MG,TWICE DAILY
     Route: 048
     Dates: start: 20200225
  41. PALONOSETRON. [Concomitant]
     Active Substance: PALONOSETRON HYDROCHLORIDE
     Dosage: 0.25,MG,DAILY
     Route: 041
     Dates: start: 20200220, end: 20200220
  42. LEVETIRACETAM. [Concomitant]
     Active Substance: LEVETIRACETAM
     Dosage: 750,MG,TWICE DAILY
     Route: 048
     Dates: start: 20200224
  43. LEVETIRACETAM. [Concomitant]
     Active Substance: LEVETIRACETAM
     Dosage: 750,MG,TWICE DAILY
     Route: 041
     Dates: start: 20200312, end: 20200314
  44. ALLOPURINOL. [Concomitant]
     Active Substance: ALLOPURINOL
     Dosage: 300,MG,DAILY
     Route: 048
     Dates: start: 20200225
  45. ACYCLOVIR [ACICLOVIR] [Concomitant]
     Active Substance: ACYCLOVIR
     Dosage: 400,MG,UNKNOWN
     Route: 048
     Dates: start: 20180901
  46. CALCIUM CARBONATE. [Concomitant]
     Active Substance: CALCIUM CARBONATE
     Dosage: 500,MG,TWICE DAILY
     Route: 048
     Dates: start: 20190513
  47. CARVEDILOL. [Concomitant]
     Active Substance: CARVEDILOL
     Dosage: 12.5,MG,TWICE DAILY
     Route: 048
     Dates: start: 20190823
  48. LORATADINE. [Concomitant]
     Active Substance: LORATADINE
     Dosage: 10,MG,AS NECESSARY
     Route: 048
     Dates: start: 20200215, end: 20200224
  49. PLATELETS [Concomitant]
     Active Substance: HUMAN PLATELET, ALLOGENIC
     Dosage: 301,ML,DAILY
     Route: 041
     Dates: start: 20200225, end: 20200225
  50. PLATELETS [Concomitant]
     Active Substance: HUMAN PLATELET, ALLOGENIC
     Dosage: 231,ML,DAILY
     Route: 041
     Dates: start: 20200228, end: 20200228
  51. RED BLOOD CELLS [Concomitant]
     Active Substance: HUMAN RED BLOOD CELL
     Dosage: 300,ML,DAILY
     Route: 041
     Dates: start: 20200225, end: 20200225
  52. OXYCODONE [Concomitant]
     Active Substance: OXYCODONE
     Dosage: 2.5,MG,AS NECESSARY
     Route: 048
     Dates: start: 20200303, end: 20200304
  53. FLUDARABINE [Suspect]
     Active Substance: FLUDARABINE PHOSPHATE
     Indication: BONE MARROW CONDITIONING REGIMEN
     Dosage: 30
     Route: 042
     Dates: start: 20200220, end: 20200220
  54. ASCORBIC ACID. [Concomitant]
     Active Substance: ASCORBIC ACID
     Dosage: 1000,MG,DAILY
     Route: 048
     Dates: start: 20150123
  55. FLUTICASONE PROPIONATE. [Concomitant]
     Active Substance: FLUTICASONE PROPIONATE
     Dosage: 100,UG,AS NECESSARY
     Route: 045
     Dates: start: 20151109
  56. VITAMIN B COMPLEX [Concomitant]
     Active Substance: CYANOCOBALAMIN\DEXPANTHENOL\NIACINAMIDE\PYRIDOXINE HYDROCHLORIDE\RIBOFLAVIN 5^-PHOSPHATE SODIUM\THIAMINE HYDROCHLORIDE\VITAMIN B COMPLEX
     Dosage: 1,OTHER,DAILY
     Route: 048
     Dates: start: 20171027
  57. ANORO ELLIPTA [Concomitant]
     Active Substance: UMECLIDINIUM BROMIDE\VILANTEROL TRIFENATATE
     Dosage: 1,OTHER,DAILY
     Route: 055
     Dates: start: 20190725
  58. LEVETIRACETAM. [Concomitant]
     Active Substance: LEVETIRACETAM
     Dosage: 750,MG,TWICE DAILY
     Route: 048
     Dates: start: 20200224, end: 20200325
  59. DIPHENHYDRAMINE. [Concomitant]
     Active Substance: DIPHENHYDRAMINE
     Dosage: 25,MG,DAILY
     Route: 041
     Dates: start: 20200302, end: 20200302
  60. ALLOPURINOL. [Concomitant]
     Active Substance: ALLOPURINOL
     Dosage: 300,MG,DAILY
     Route: 048
     Dates: start: 20200225, end: 20200307
  61. PLATELETS [Concomitant]
     Active Substance: HUMAN PLATELET, ALLOGENIC
     Dosage: 310,ML,DAILY
     Route: 041
     Dates: start: 20200226, end: 20200226
  62. PROCHLORPERAZINE. [Concomitant]
     Active Substance: PROCHLORPERAZINE
     Dosage: 10,MG,AS NECESSARY
     Route: 048
     Dates: start: 20200220, end: 20200224

REACTIONS (4)
  - Confusional state [Recovered/Resolved]
  - Cytokine release syndrome [Recovered/Resolved]
  - Pyrexia [Recovered/Resolved]
  - Hypoxia [Recovered/Resolved]

NARRATIVE: CASE EVENT DATE: 20200304
